FAERS Safety Report 21392608 (Version 2)
Quarter: 2022Q4

REPORT INFORMATION
  Report Type: Spontaneous
  Country: US (occurrence: US)
  Receive Date: 20220929
  Receipt Date: 20221014
  Transmission Date: 20230113
  Serious: Yes (Hospitalization)
  Sender: FDA-Public Use
  Company Number: US-TEVA-2022-US-2076346

PATIENT
  Age: 26 Year
  Sex: Male

DRUGS (15)
  1. HALOPERIDOL [Suspect]
     Active Substance: HALOPERIDOL
     Indication: Antipsychotic therapy
     Route: 065
  2. OLANZAPINE [Suspect]
     Active Substance: OLANZAPINE
     Indication: Antipsychotic therapy
     Dosage: 20 MILLIGRAM DAILY; TAKEN IN THE MORNING
     Route: 048
  3. RISPERIDONE [Suspect]
     Active Substance: RISPERIDONE
     Indication: Antipsychotic therapy
     Route: 065
  4. ZOLPIDEM [Suspect]
     Active Substance: ZOLPIDEM TARTRATE
     Indication: Catatonia
     Route: 065
  5. ARIPIPRAZOLE [Suspect]
     Active Substance: ARIPIPRAZOLE
     Indication: Antipsychotic therapy
     Dosage: 2 MILLIGRAM DAILY;
     Route: 065
  6. DIAZEPAM [Suspect]
     Active Substance: DIAZEPAM
     Indication: Catatonia
     Dosage: 40 MILLIGRAM DAILY;
     Route: 065
  7. LORAZEPAM [Suspect]
     Active Substance: LORAZEPAM
     Indication: Neuroleptic malignant syndrome
     Dosage: THREE TIMES A DAY
     Route: 065
  8. LORAZEPAM [Suspect]
     Active Substance: LORAZEPAM
     Indication: Catatonia
     Dosage: 30 MILLIGRAM DAILY; DOSE GRADUALLY INCREASED TO 30MG/DAY
     Route: 065
  9. LITHIUM [Suspect]
     Active Substance: LITHIUM
     Indication: Antipsychotic therapy
     Route: 065
  10. FLUPHENAZINE [Suspect]
     Active Substance: FLUPHENAZINE
     Indication: Antipsychotic therapy
     Route: 065
  11. CHLORPROMAZINE [Suspect]
     Active Substance: CHLORPROMAZINE
     Indication: Antipsychotic therapy
     Dosage: 100 MG
     Route: 030
  12. LORAZEPAM [Suspect]
     Active Substance: LORAZEPAM
     Indication: Catatonia
     Dosage: 30 MILLIGRAM DAILY;
     Route: 030
  13. CLONAZEPAM [Concomitant]
     Active Substance: CLONAZEPAM
     Indication: Product used for unknown indication
     Dosage: DOSAGE: 1MG IN THE MORNING AND 2MG AT BEDTIME
     Route: 065
  14. PRAZOSIN [Concomitant]
     Active Substance: PRAZOSIN
     Indication: Product used for unknown indication
     Dosage: THREE TIMES A DAY , 1 MG
     Route: 065
  15. VALPROIC ACID [Concomitant]
     Active Substance: VALPROIC ACID
     Indication: Neuroleptic malignant syndrome
     Dosage: 1000 MILLIGRAM DAILY;
     Route: 065

REACTIONS (3)
  - Neuroleptic malignant syndrome [Recovered/Resolved]
  - Rhabdomyolysis [Recovered/Resolved]
  - Treatment failure [Unknown]
